FAERS Safety Report 21284243 (Version 1)
Quarter: 2022Q3

REPORT INFORMATION
  Report Type: Other
  Country: GT (occurrence: GT)
  Receive Date: 20220902
  Receipt Date: 20220902
  Transmission Date: 20221027
  Serious: Yes (Life-Threatening, Other)
  Sender: FDA-Public Use
  Company Number: GT-TOLMAR, INC.-22GT036339

PATIENT
  Sex: Male

DRUGS (1)
  1. ELIGARD [Suspect]
     Active Substance: LEUPROLIDE ACETATE
     Indication: Prostate cancer
     Dosage: 45 MILLIGRAM, Q 6 MONTH
     Route: 058
     Dates: start: 2022

REACTIONS (4)
  - Metastases to bone [Unknown]
  - Spinal fracture [Unknown]
  - Osteomyelitis [Unknown]
  - Orchitis [Unknown]
